FAERS Safety Report 5136561-7 (Version None)
Quarter: 2006Q4

REPORT INFORMATION
  Report Type: 
  Country: None (occurrence: None)
  Receive Date: 20061027
  Receipt Date: 20061020
  Transmission Date: 20070319
  Serious: Yes (Hospitalization, Other)
  Sender: FDA-Public Use
  Company Number: NO-NOVOPROD-257883

PATIENT
  Age: 59 Year
  Sex: Female

DRUGS (2)
  1. ACTIVELLE [Suspect]
     Indication: MENOPAUSAL SYMPTOMS
     Dates: end: 20060421
  2. LEVAXIN [Concomitant]
     Indication: HYPOTHYROIDISM
     Dosage: 5-10 UG, QD

REACTIONS (1)
  - DEEP VEIN THROMBOSIS [None]
